FAERS Safety Report 4694953-4 (Version None)
Quarter: 2005Q2

REPORT INFORMATION
  Report Type: 
  Country: None (occurrence: None)
  Receive Date: 20050617
  Receipt Date: 20050329
  Transmission Date: 20051028
  Serious: Yes (Other)
  Sender: FDA-Public Use
  Company Number: US-2005-004543

PATIENT
  Age: 60 Year
  Sex: Male

DRUGS (3)
  1. FLUDARA [Suspect]
     Indication: B-CELL LYMPHOMA
     Dosage: 25 MG/M2 D1-3 X 6 CYCLES
     Dates: end: 20050201
  2. CYTOXAN [Suspect]
     Indication: B-CELL LYMPHOMA
     Dosage: 400 MG D1-3 X 6 CYCLES, INTRAVENOUS
     Route: 042
     Dates: end: 20050201
  3. RITUXAN [Suspect]
     Indication: B-CELL LYMPHOMA
     Dosage: D1 X 6 CYCLES, INTRAVENOUS
     Route: 042
     Dates: end: 20050201

REACTIONS (1)
  - BONE MARROW DEPRESSION [None]
